FAERS Safety Report 9211180 (Version 2)
Quarter: 2013Q2

REPORT INFORMATION
  Report Type: Report from Study
  Country: US (occurrence: BW)
  Receive Date: 20130404
  Receipt Date: 20130404
  Transmission Date: 20140414
  Serious: Yes (Other)
  Sender: FDA-Public Use
  Company Number: BW-B.I. PHARMACEUTICALS,INC./RIDGEFIELD-2004-BP-03024BP

PATIENT
  Age: 45 Year
  Sex: Female

DRUGS (3)
  1. VIRAMUNE [Suspect]
     Indication: HIV INFECTION
     Dates: start: 20040130
  2. DIDANOSINE [Suspect]
     Indication: HIV INFECTION
     Dates: start: 20040130
  3. ZIDOVUDINE [Suspect]
     Indication: HIV INFECTION
     Dates: start: 20040130

REACTIONS (5)
  - Amylase increased [Unknown]
  - Lipase increased [Unknown]
  - Polyuria [Unknown]
  - Polydipsia [Unknown]
  - Dysuria [Unknown]
